FAERS Safety Report 7349252-9 (Version None)
Quarter: 2011Q1

REPORT INFORMATION
  Report Type: 
  Country: None (occurrence: None)
  Receive Date: 20110304
  Receipt Date: 20110223
  Transmission Date: 20110831
  Serious: Yes (Hospitalization)
  Sender: FDA-Public Use
  Company Number: 014183

PATIENT
  Sex: Female
  Weight: 47.1 kg

DRUGS (9)
  1. TELESMIN [Concomitant]
  2. CARBAMAZEPINE [Concomitant]
  3. LEVETIRACETAM [Suspect]
     Indication: PARTIAL SEIZURES
     Dosage: SEE IMAGE,  ORAL
     Route: 048
     Dates: start: 20060127
  4. LEVETIRACETAM [Suspect]
     Indication: PARTIAL SEIZURES
     Dosage: SEE IMAGE,  ORAL
     Route: 048
     Dates: start: 20101221
  5. LEVETIRACETAM [Suspect]
     Indication: PARTIAL SEIZURES
     Dosage: SEE IMAGE,  ORAL
     Route: 048
     Dates: start: 20061005, end: 20061129
  6. LEVETIRACETAM [Suspect]
     Indication: PARTIAL SEIZURES
     Dosage: SEE IMAGE,  ORAL
     Route: 048
     Dates: start: 20100119, end: 20100215
  7. LEVETIRACETAM [Suspect]
     Indication: PARTIAL SEIZURES
     Dosage: SEE IMAGE,  ORAL
     Route: 048
     Dates: start: 20100216, end: 20101220
  8. LEVETIRACETAM [Suspect]
     Indication: PARTIAL SEIZURES
     Dosage: SEE IMAGE,  ORAL
     Route: 048
     Dates: start: 20061130, end: 20100118
  9. LEVETIRACETAM [Suspect]
     Indication: PARTIAL SEIZURES
     Dosage: SEE IMAGE,  ORAL
     Route: 048
     Dates: start: 20060907, end: 20061004

REACTIONS (9)
  - HYPERACUSIS [None]
  - IDEAS OF REFERENCE [None]
  - HYPOAESTHESIA [None]
  - DELUSION OF REFERENCE [None]
  - HEADACHE [None]
  - ANXIETY [None]
  - CONVULSION [None]
  - CONDITION AGGRAVATED [None]
  - NERVOUSNESS [None]
